FAERS Safety Report 13815328 (Version 4)
Quarter: 2017Q3

REPORT INFORMATION
  Report Type: Spontaneous
  Country: LB (occurrence: LB)
  Receive Date: 20170731
  Receipt Date: 20170905
  Transmission Date: 20171127
  Serious: Yes (Life-Threatening, Disabling)
  Sender: FDA-Public Use
  Company Number: LB-PFIZER INC-2017327084

PATIENT
  Age: 54 Year
  Sex: Female

DRUGS (5)
  1. VITAMIN D /00107901/ [Concomitant]
     Active Substance: ERGOCALCIFEROL
     Dosage: 1 DF, WEEKLY
  2. OROCAL D3 [Concomitant]
     Active Substance: CALCIUM CARBONATE\CHOLECALCIFEROL
     Dosage: 1 DF, 1X/DAY
  3. NEURONTIN [Suspect]
     Active Substance: GABAPENTIN
     Dosage: 400 MG, 1X/DAY(PRESCRIBED 1 PILL MORNING 1 NIGHT, BUT FROM 1ST PILL FELT ADVERSE EVENT)
     Dates: start: 20170603, end: 20170603
  4. CRESTOR OD [Concomitant]
     Active Substance: ROSUVASTATIN CALCIUM
     Dosage: 10 MG, 1X/DAY
  5. EUTHYROX [Concomitant]
     Active Substance: LEVOTHYROXINE SODIUM
     Dosage: 100 MG, 1X/DAY

REACTIONS (6)
  - Nausea [Recovered/Resolved]
  - Tachycardia [Recovered/Resolved]
  - Asthenia [Recovered/Resolved]
  - Speech disorder [Recovered/Resolved]
  - Drug ineffective [Recovered/Resolved]
  - Blood pressure measurement [Recovered/Resolved]

NARRATIVE: CASE EVENT DATE: 20170603
